FAERS Safety Report 4741721-0 (Version None)
Quarter: 2005Q3

REPORT INFORMATION
  Report Type: 
  Country: None (occurrence: None)
  Receive Date: 20050810
  Receipt Date: 20050204
  Transmission Date: 20060218
  Serious: Yes (Hospitalization, Disabling)
  Sender: FDA-Public Use
  Company Number: AU-MERCK-0502AUS00121

PATIENT
  Age: 80 Year
  Sex: Female

DRUGS (3)
  1. VIOXX [Suspect]
     Route: 048
     Dates: start: 19990101, end: 20040501
  2. [THERAPY UNSPECIFIED] [Concomitant]
     Route: 065
     Dates: start: 19990901
  3. BLOOD THINNER (UNSPECIFIED) [Concomitant]
     Route: 065
     Dates: start: 19990901

REACTIONS (2)
  - CARDIAC DISORDER [None]
  - MYOCARDIAL INFARCTION [None]
